FAERS Safety Report 6295303-2 (Version None)
Quarter: 2009Q3

REPORT INFORMATION
  Report Type: 
  Country: None (occurrence: None)
  Receive Date: 20090803
  Receipt Date: 20090723
  Transmission Date: 20100115
  Serious: Yes (Death, Hospitalization, Disabling, Other)
  Sender: FDA-Public Use
  Company Number: US-TYCO HEALTHCARE/MALLINCKRODT-T200700715

PATIENT

DRUGS (75)
  1. OPTIMARK [Suspect]
     Indication: NUCLEAR MAGNETIC RESONANCE IMAGING BRAIN
     Dosage: 9 ML, SINGLE
     Dates: start: 20040514, end: 20040514
  2. OPTIMARK [Suspect]
     Indication: NUCLEAR MAGNETIC RESONANCE IMAGING
  3. PROHANCE [Suspect]
     Indication: NUCLEAR MAGNETIC RESONANCE IMAGING
     Dosage: UNK, SINGLE
  4. MULTIHANCE [Suspect]
     Indication: NUCLEAR MAGNETIC RESONANCE IMAGING
     Dosage: UNK, SINGLE
  5. OMNISCAN [Suspect]
     Indication: NUCLEAR MAGNETIC RESONANCE IMAGING
     Dosage: 7 ML (CC), SINGLE
     Dates: start: 20030323, end: 20030323
  6. OMNISCAN [Suspect]
     Dosage: 8 ML (CC), SINGLE
     Dates: start: 20030730, end: 20030730
  7. OMNISCAN [Suspect]
     Dosage: 8.8 ML, SINGLE
     Dates: start: 20030825, end: 20030825
  8. OMNISCAN [Suspect]
     Dosage: 10 ML, SINGLE
     Dates: start: 20030918, end: 20030918
  9. OMNISCAN [Suspect]
     Dosage: 8 ML (CC), SINGLE
     Dates: start: 20040219, end: 20040219
  10. OMNISCAN [Suspect]
     Dosage: 7 ML (CC), SINGLE
     Dates: start: 20040802, end: 20040802
  11. OMNISCAN [Suspect]
     Dosage: 7 ML, SINGLE
     Dates: start: 20041020, end: 20041020
  12. MAGNEVIST [Suspect]
     Indication: NUCLEAR MAGNETIC RESONANCE IMAGING
     Dosage: 7 ML (CC), SINGLE
     Dates: start: 20030109, end: 20030109
  13. MAGNEVIST [Suspect]
     Dosage: 10 ML, SINGLE
     Dates: start: 20040522, end: 20040522
  14. MAGNEVIST [Suspect]
     Dosage: 7.6 ML, SINGLE
     Dates: start: 20040611, end: 20040611
  15. GADOLINIUM [Suspect]
     Indication: NUCLEAR MAGNETIC RESONANCE IMAGING
     Dosage: 7 ML, SINGLE
     Dates: start: 20030109, end: 20030109
  16. GADOLINIUM [Suspect]
     Dosage: UNK, SINGLE
     Dates: start: 20030323, end: 20030323
  17. GADOLINIUM [Suspect]
     Dosage: UNK, SINGLE
     Dates: start: 20030918, end: 20030918
  18. GADOLINIUM [Suspect]
     Dosage: UNK, SINGLE
     Dates: start: 20041020, end: 20041020
  19. VINCRISTINE [Concomitant]
     Indication: CHEMOTHERAPY
     Dates: start: 19930101, end: 20040101
  20. ACTINOMYCIN D [Concomitant]
     Indication: CHEMOTHERAPY
  21. CYTOXAN [Concomitant]
     Indication: CHEMOTHERAPY
     Dates: start: 20010101
  22. IFOSFAMIDE [Concomitant]
     Indication: CHEMOTHERAPY
     Dates: start: 20010625, end: 20010627
  23. VP-16 [Concomitant]
     Indication: CHEMOTHERAPY
     Dates: start: 20010625, end: 20010627
  24. MDP-SQUIBB [Concomitant]
     Dosage: 10.4 MCI, SINGLE
     Route: 042
     Dates: start: 20010605, end: 20010605
  25. MDP-SQUIBB [Concomitant]
     Dosage: 11 MCI, SINGLE
     Dates: start: 20030324, end: 20030324
  26. MDP-SQUIBB [Concomitant]
     Dosage: 8.8 MCI, SINGLE
     Route: 042
     Dates: start: 20010824, end: 20010824
  27. DIGOXIN [Concomitant]
     Dosage: 2 ML, UNK
  28. CAPTOPRIL [Concomitant]
     Indication: HYPERTENSION
     Dosage: 25 MG, UNK
  29. ROCALTROL [Concomitant]
     Indication: BLOOD CALCIUM DECREASED
     Dosage: 25 UG, UNK
     Dates: start: 19930101, end: 20040101
  30. BICITRA                            /00586801/ [Concomitant]
     Dosage: 30 ML, UNK
  31. BICITRA                            /00586801/ [Concomitant]
     Dates: start: 20030825
  32. BICITRA                            /00586801/ [Concomitant]
     Dates: end: 20030825
  33. BICITRA                            /00586801/ [Concomitant]
     Dosage: 11.7 MCI, UNK
  34. BICITRA                            /00586801/ [Concomitant]
     Dates: start: 20030825
  35. BICITRA                            /00586801/ [Concomitant]
     Dates: start: 20030825
  36. BICITRA                            /00586801/ [Concomitant]
     Dates: start: 20030825
  37. TUMS                               /00108001/ [Concomitant]
  38. ADRIAMYCIN PFS [Concomitant]
     Indication: CHEMOTHERAPY
     Dates: start: 20010101
  39. FILGRASTIM [Concomitant]
     Indication: INFECTION PROPHYLAXIS
     Dosage: 200 UG, UNK
     Route: 058
     Dates: start: 20010607
  40. DEXAMETHASONE [Concomitant]
     Dosage: 4 MG, UNK
     Route: 048
     Dates: start: 20010607
  41. DEXAMETHASONE [Concomitant]
     Dates: start: 19930101, end: 20010101
  42. RANITIDINE [Concomitant]
     Dosage: 150 MG, UNK
     Route: 048
     Dates: start: 20010607
  43. METOCLOPRAMIDE [Concomitant]
  44. DIPHENHYDRAMINE HCL [Concomitant]
  45. ONDANSETRON [Concomitant]
     Indication: PROPHYLAXIS OF NAUSEA AND VOMITING
     Dates: start: 20010101, end: 20040101
  46. AMLODIPINE [Concomitant]
  47. EPOETIN ALFA [Concomitant]
     Dates: start: 20010603
  48. EPOETIN ALFA [Concomitant]
     Dates: start: 20040522, end: 20040523
  49. ALLOPURINOL [Concomitant]
     Dosage: 100 MG, UNK
     Route: 048
     Dates: start: 20010531
  50. CALCIUM CARBONATE [Concomitant]
     Route: 048
     Dates: start: 20010530
  51. FERROUS SULFATE TAB [Concomitant]
     Indication: BLOOD IRON DECREASED
     Dosage: UNK, UNK
     Route: 048
     Dates: start: 20010530, end: 20040101
  52. MESNA [Concomitant]
     Indication: PROPHYLAXIS
     Dates: start: 20010101, end: 20020101
  53. LASIX [Concomitant]
     Route: 042
     Dates: start: 20010607, end: 20010607
  54. ACTIVASE [Concomitant]
     Indication: CATHETER RELATED COMPLICATION
     Dosage: 1 MG, UNK
     Route: 042
     Dates: start: 20010628, end: 20010628
  55. FOLIC ACID [Concomitant]
     Indication: ANAEMIA
  56. B COMPLEX                          /00212701/ [Concomitant]
     Dates: start: 20040421
  57. BACTRIM [Concomitant]
  58. TYLENOL (CAPLET) [Concomitant]
     Indication: ARTHRALGIA
     Dosage: UNK, PRN
     Dates: start: 19930101, end: 20040101
  59. NEPHRO-VITE RX [Concomitant]
  60. SODIUM BICARBONATE [Concomitant]
  61. NEURONTIN [Concomitant]
     Indication: CONVULSION
     Dosage: 50 MG, UNK
     Route: 048
     Dates: start: 20030301
  62. NEURONTIN [Concomitant]
     Dosage: 100 MG, UNK
     Route: 048
     Dates: start: 20030401
  63. PHOSLO [Concomitant]
  64. TOPAMAX [Concomitant]
  65. CARBATROL [Concomitant]
     Dosage: 200 MG, UNK
     Route: 048
     Dates: start: 20040612
  66. VICODIN [Concomitant]
  67. DEPAKOTE [Concomitant]
     Dates: start: 20040601
  68. AMITRIPTYLINE HCL [Concomitant]
  69. RENAGEL                            /01459901/ [Concomitant]
     Indication: RENAL FAILURE CHRONIC
     Dates: start: 20040601
  70. RED BLOOD CELLS [Concomitant]
     Dosage: 300 ML, UNK
     Dates: start: 20020306, end: 20020306
  71. RED BLOOD CELLS [Concomitant]
     Dates: start: 20040923, end: 20040923
  72. RED BLOOD CELLS [Concomitant]
     Dosage: 300 ML, UNK
     Dates: start: 20041223, end: 20041223
  73. RED BLOOD CELLS [Concomitant]
     Dates: start: 20041224, end: 20041224
  74. REGRANEX [Concomitant]
     Dates: start: 20041001
  75. OTHER CHEMOTHERAPEUTICS [Concomitant]
     Dates: start: 19930101, end: 19940101

REACTIONS (18)
  - CARDIAC ARREST [None]
  - CENTRAL LINE INFECTION [None]
  - COAGULOPATHY [None]
  - DECUBITUS ULCER [None]
  - DISCOMFORT [None]
  - EYE INFECTION [None]
  - GRAND MAL CONVULSION [None]
  - HEADACHE [None]
  - HYPERCALCAEMIA [None]
  - MALNUTRITION [None]
  - NEPHROGENIC SYSTEMIC FIBROSIS [None]
  - OFF LABEL USE [None]
  - OSTEOPENIA [None]
  - PLEURAL EFFUSION [None]
  - RESUSCITATION [None]
  - TRANSPLANT FAILURE [None]
  - WHEELCHAIR USER [None]
  - WOUND [None]
